FAERS Safety Report 14598358 (Version 1)
Quarter: 2018Q1

REPORT INFORMATION
  Report Type: Spontaneous
  Country: US (occurrence: US)
  Receive Date: 20180304
  Receipt Date: 20180304
  Transmission Date: 20180509
  Serious: No
  Sender: FDA-Public Use
  Company Number: None

PATIENT
  Age: 48 Day
  Sex: Female
  Weight: 77.11 kg

DRUGS (2)
  1. BIOTIN [Concomitant]
     Active Substance: BIOTIN
  2. MIRENA [Suspect]
     Active Substance: LEVONORGESTREL

REACTIONS (5)
  - Alopecia [None]
  - Hypothyroidism [None]
  - Rash [None]
  - Depression [None]
  - Weight increased [None]

NARRATIVE: CASE EVENT DATE: 20130315
